FAERS Safety Report 19397607 (Version 5)
Quarter: 2021Q3

REPORT INFORMATION
  Report Type: Spontaneous
  Country: ES (occurrence: ES)
  Receive Date: 20210610
  Receipt Date: 20210714
  Transmission Date: 20211014
  Serious: No
  Sender: FDA-Public Use
  Company Number: ES-JNJFOC-20210604025

PATIENT
  Sex: Female

DRUGS (12)
  1. DUROGESIC MATRIX [Suspect]
     Active Substance: FENTANYL
     Indication: SPINAL PAIN
     Dosage: STRENGTH: 100.00 MCG/HR
     Route: 062
  2. DUROGESIC MATRIX [Suspect]
     Active Substance: FENTANYL
     Dosage: FIRSTLY THE PATIENT WAS TAKING 25MG
     Route: 062
  3. DUROGESIC MATRIX [Suspect]
     Active Substance: FENTANYL
  4. DUROGESIC MATRIX [Suspect]
     Active Substance: FENTANYL
  5. DUROGESIC MATRIX [Suspect]
     Active Substance: FENTANYL
  6. DUROGESIC MATRIX [Suspect]
     Active Substance: FENTANYL
  7. DUROGESIC MATRIX [Suspect]
     Active Substance: FENTANYL
  8. DUROGESIC MATRIX [Suspect]
     Active Substance: FENTANYL
  9. DUROGESIC MATRIX [Suspect]
     Active Substance: FENTANYL
     Indication: SPINAL PAIN
     Dosage: STRENGTH: UNKNOWN
     Route: 062
  10. DUROGESIC MATRIX [Suspect]
     Active Substance: FENTANYL
  11. DUROGESIC MATRIX [Suspect]
     Active Substance: FENTANYL
  12. DUROGESIC MATRIX [Suspect]
     Active Substance: FENTANYL

REACTIONS (3)
  - Drug ineffective [Unknown]
  - Product physical issue [Unknown]
  - Product adhesion issue [Unknown]
